FAERS Safety Report 19350201 (Version 1)
Quarter: 2021Q2

REPORT INFORMATION
  Report Type: Spontaneous
  Country: US (occurrence: US)
  Receive Date: 20210528
  Receipt Date: 20210528
  Transmission Date: 20210717
  Serious: No
  Sender: FDA-Public Use
  Company Number: None

PATIENT
  Age: 57 Year
  Sex: Female

DRUGS (3)
  1. OMEPRAZOLE. [Concomitant]
     Active Substance: OMEPRAZOLE
  2. IMODIUM A?D [Concomitant]
     Active Substance: LOPERAMIDE HYDROCHLORIDE
  3. AMBRISENTAN 5MG TAB [Suspect]
     Active Substance: AMBRISENTAN

REACTIONS (2)
  - Organising pneumonia [None]
  - Dysstasia [None]

NARRATIVE: CASE EVENT DATE: 20210527
